FAERS Safety Report 8217275-3 (Version None)
Quarter: 2012Q1

REPORT INFORMATION
  Report Type: 
  Country: None (occurrence: None)
  Receive Date: 20120307
  Receipt Date: 20120227
  Transmission Date: 20120608
  Serious: Yes (Hospitalization)
  Sender: FDA-Public Use
  Company Number: 1215959

PATIENT
  Age: 82 Year
  Sex: Female

DRUGS (1)
  1. VANCOMYCIN HYDROCHLORIDE [Suspect]
     Indication: SOFT TISSUE INFECTION
     Dosage: 1 G TWICE DAILY, INTRAVENOUS (NOT OTHERWISE SPECIFIED)
     Route: 042

REACTIONS (4)
  - HYPERKALAEMIA [None]
  - ANURIA [None]
  - ACCIDENTAL OVERDOSE [None]
  - CONTINUOUS HAEMODIAFILTRATION [None]
